FAERS Safety Report 7389651-2 (Version None)
Quarter: 2011Q2

REPORT INFORMATION
  Report Type: 
  Country: None (occurrence: None)
  Receive Date: 20110401
  Receipt Date: 20110330
  Transmission Date: 20111010
  Serious: Yes (Death, Other)
  Sender: FDA-Public Use
  Company Number: AR-PFIZER INC-2011071807

PATIENT
  Sex: Male

DRUGS (1)
  1. SUTENT [Suspect]
     Indication: RENAL CANCER

REACTIONS (4)
  - DEATH [None]
  - NEOPLASM MALIGNANT [None]
  - BRAIN NEOPLASM [None]
  - GENERAL PHYSICAL HEALTH DETERIORATION [None]
